FAERS Safety Report 4871429-2 (Version None)
Quarter: 2005Q4

REPORT INFORMATION
  Report Type: 
  Country: None (occurrence: None)
  Receive Date: 20051229
  Receipt Date: 20051216
  Transmission Date: 20060501
  Serious: Yes (Other)
  Sender: FDA-Public Use
  Company Number: 2005159249

PATIENT
  Sex: Female
  Weight: 63.5036 kg

DRUGS (13)
  1. NEURONTIN [Suspect]
     Indication: ILL-DEFINED DISORDER
     Dosage: 3600 MG (3600 MG, 1 IN 1 D),
     Dates: start: 19990101, end: 20050901
  2. LYRICA [Suspect]
     Indication: TREMOR
     Dosage: 150 MG (75 MG, 2 IN 1 D),
     Dates: start: 20041014
  3. GABITRIL [Suspect]
     Indication: ILL-DEFINED DISORDER
     Dates: start: 20050101
  4. FOSAMAX [Concomitant]
  5. SKELAXIN [Concomitant]
  6. FLEXERIL [Concomitant]
  7. VERAPAMIL [Concomitant]
  8. TEMAZEPAM [Concomitant]
  9. HYDROCODONE BITARTRATE [Concomitant]
  10. ULTRACET [Concomitant]
  11. ULTRAM [Concomitant]
  12. ALL OTHER THERAPEUTIC PRODUCTS (ALL OTHER THERAPEUTIC PRODUCTS) [Concomitant]
  13. ASPIRIN [Concomitant]

REACTIONS (5)
  - CHILLS [None]
  - INTERVERTEBRAL DISC DISORDER [None]
  - SPINAL DISORDER [None]
  - TINNITUS [None]
  - TREMOR [None]
